FAERS Safety Report 11200320 (Version 1)
Quarter: 2015Q2

REPORT INFORMATION
  Report Type: Spontaneous
  Country: US (occurrence: US)
  Receive Date: 20150618
  Receipt Date: 20150618
  Transmission Date: 20150821
  Serious: Yes (Hospitalization)
  Sender: FDA-Public Use
  Company Number: US-UNITED THERAPEUTICS-UNT-2015-006896

PATIENT
  Age: 47 Year
  Sex: Female
  Weight: 95.24 kg

DRUGS (2)
  1. REMODULIN [Suspect]
     Active Substance: TREPROSTINIL
     Dosage: 0.018 ?G/KG, CONTINUING
     Route: 041
     Dates: start: 20150302
  2. REMODULIN [Suspect]
     Active Substance: TREPROSTINIL
     Indication: PULMONARY ARTERIAL HYPERTENSION
     Dosage: 0.01 ?G/KG, CONTINUING
     Route: 041
     Dates: start: 20150219

REACTIONS (10)
  - Infusion site oedema [Unknown]
  - Dizziness [Unknown]
  - Dyspnoea [Unknown]
  - Infusion site discharge [Unknown]
  - Infusion site erythema [Unknown]
  - Myocardial necrosis marker increased [Unknown]
  - Infusion site induration [Unknown]
  - Infusion site pain [Unknown]
  - Infusion site warmth [Unknown]
  - Vision blurred [Unknown]

NARRATIVE: CASE EVENT DATE: 20150514
